FAERS Safety Report 8031209-6 (Version None)
Quarter: 2012Q1

REPORT INFORMATION
  Report Type: 
  Country: None (occurrence: None)
  Receive Date: 20120109
  Receipt Date: 20120105
  Transmission Date: 20120608
  Serious: No
  Sender: FDA-Public Use
  Company Number: US-B.I. PHARMACEUTICALS,INC./RIDGEFIELD-2012-BP-00290BP

PATIENT
  Age: 63 Year
  Sex: Female

DRUGS (12)
  1. SPIRIVA [Suspect]
     Indication: CHRONIC OBSTRUCTIVE PULMONARY DISEASE
     Dosage: 18 MCG
     Route: 055
     Dates: start: 20110501
  2. HYDROCHLOROTHIAZIDE [Concomitant]
     Indication: HYPERTENSION
  3. TRAMADOL HCL [Concomitant]
     Indication: MUSCULOSKELETAL PAIN
  4. GAS-EX [Concomitant]
     Indication: DYSPEPSIA
  5. SPIRIVA [Suspect]
     Route: 048
  6. HYDROXYCHLOROQUINE SULFATE [Concomitant]
     Indication: SYSTEMIC LUPUS ERYTHEMATOSUS
  7. IMITREX [Concomitant]
     Indication: MIGRAINE
  8. BENADRYL [Concomitant]
     Indication: SEASONAL ALLERGY
  9. LISINOPRIL [Concomitant]
     Indication: HYPERTENSION
  10. ALBUTEROL [Concomitant]
     Indication: ASTHMA
  11. VENTOLIN [Concomitant]
     Indication: ASTHMA
  12. VALIUM [Concomitant]
     Indication: MIGRAINE

REACTIONS (1)
  - INCORRECT ROUTE OF DRUG ADMINISTRATION [None]
